FAERS Safety Report 6236445-7 (Version None)
Quarter: 2009Q2

REPORT INFORMATION
  Report Type: 
  Country: None (occurrence: None)
  Receive Date: 20090619
  Receipt Date: 20090609
  Transmission Date: 20091009
  Serious: Yes (Hospitalization, Other)
  Sender: FDA-Public Use
  Company Number: US-PFIZER INC-2005052087

PATIENT
  Sex: Male
  Weight: 81.65 kg

DRUGS (8)
  1. DETROL LA [Suspect]
     Indication: POLLAKIURIA
     Route: 048
     Dates: start: 20010101
  2. OXYCET [Suspect]
     Indication: PAIN
     Route: 048
     Dates: start: 20020101, end: 20040101
  3. SIMVASTATIN [Concomitant]
     Route: 048
  4. BISOPROLOL FUMARATE [Concomitant]
     Route: 048
  5. AMLODIPINE BESYLATE [Concomitant]
     Route: 048
  6. LISINOPRIL [Concomitant]
     Route: 048
  7. HYDROCHLOROTHIAZIDE [Concomitant]
     Route: 048
  8. ULTRACET [Concomitant]
     Route: 048

REACTIONS (10)
  - BACK INJURY [None]
  - CEREBROVASCULAR ACCIDENT [None]
  - COMA [None]
  - CONSTIPATION [None]
  - GASTROINTESTINAL INJURY [None]
  - HALLUCINATION [None]
  - NOCTURIA [None]
  - PAIN [None]
  - RECTAL HAEMORRHAGE [None]
  - ROAD TRAFFIC ACCIDENT [None]
